FAERS Safety Report 10213080 (Version 1)
Quarter: 2014Q2

REPORT INFORMATION
  Report Type: Spontaneous
  Country: CA (occurrence: CA)
  Receive Date: 20140603
  Receipt Date: 20140603
  Transmission Date: 20141212
  Serious: Yes (Other)
  Sender: FDA-Public Use
  Company Number: CA-ROCHE-1412121

PATIENT
  Age: 59 Year
  Sex: Male

DRUGS (6)
  1. PEGASYS [Suspect]
     Indication: PRODUCT USED FOR UNKNOWN INDICATION
     Route: 058
  2. PEGASYS [Suspect]
     Route: 065
  3. PEGASYS [Suspect]
     Route: 065
  4. PEGASYS [Suspect]
     Route: 065
  5. RIBAVIRIN [Suspect]
     Indication: PRODUCT USED FOR UNKNOWN INDICATION
     Route: 065
  6. INCIVEK [Suspect]
     Indication: PRODUCT USED FOR UNKNOWN INDICATION
     Route: 048

REACTIONS (1)
  - White blood cell count decreased [Not Recovered/Not Resolved]
